FAERS Safety Report 26134082 (Version 1)
Quarter: 2025Q4

REPORT INFORMATION
  Report Type: Spontaneous
  Country: IN (occurrence: IN)
  Receive Date: 20251209
  Receipt Date: 20251209
  Transmission Date: 20260117
  Serious: Yes (Other)
  Sender: RANBAXY
  Company Number: IN-SUN PHARMACEUTICAL INDUSTRIES LTD-2025R1-540103

PATIENT
  Age: 36 Year
  Sex: Female

DRUGS (3)
  1. CLOZAPINE [Suspect]
     Active Substance: CLOZAPINE
     Indication: Bipolar disorder
     Dosage: 200 MILLIGRAM, OD
     Route: 065
  2. DIVALPROEX SODIUM [Suspect]
     Active Substance: DIVALPROEX SODIUM
     Indication: Bipolar disorder
     Dosage: 500 MILLIGRAM, BID
     Route: 065
  3. LITHIUM [Suspect]
     Active Substance: LITHIUM
     Indication: Bipolar disorder
     Dosage: 450 MILLIGRAM, BID
     Route: 065

REACTIONS (1)
  - Ileus paralytic [Recovering/Resolving]
